FAERS Safety Report 7040657-2 (Version None)
Quarter: 2010Q4

REPORT INFORMATION
  Report Type: 
  Country: None (occurrence: None)
  Receive Date: 20101013
  Receipt Date: 20101006
  Transmission Date: 20110411
  Serious: Yes (Hospitalization)
  Sender: FDA-Public Use
  Company Number: US-AMGEN-KDL438087

PATIENT
  Sex: Female
  Weight: 133 kg

DRUGS (2)
  1. ENBREL [Suspect]
     Indication: RHEUMATOID ARTHRITIS
     Route: 058
     Dates: start: 20031101
  2. METHOTREXATE [Suspect]
     Indication: PRODUCT USED FOR UNKNOWN INDICATION

REACTIONS (10)
  - BACK PAIN [None]
  - CHRONIC OBSTRUCTIVE PULMONARY DISEASE [None]
  - DIZZINESS [None]
  - DRUG TOXICITY [None]
  - DYSPNOEA [None]
  - EAR DISORDER [None]
  - EAR INFECTION [None]
  - INFECTION [None]
  - ORGANISING PNEUMONIA [None]
  - WEIGHT INCREASED [None]
